FAERS Safety Report 5130295-0 (Version None)
Quarter: 2006Q4

REPORT INFORMATION
  Report Type: 
  Country: None (occurrence: None)
  Receive Date: 20061019
  Receipt Date: 20060920
  Transmission Date: 20070319
  Serious: Yes (Other)
  Sender: FDA-Public Use
  Company Number: 2006UW18400

PATIENT
  Age: 60 Year
  Sex: Female
  Weight: 85.9 kg

DRUGS (3)
  1. ARIMIDEX [Suspect]
     Indication: BREAST CANCER
     Route: 048
     Dates: start: 20060601
  2. BONIVA [Concomitant]
  3. BETHASONE [Concomitant]

REACTIONS (3)
  - BODY HEIGHT DECREASED [None]
  - CERVICAL POLYP [None]
  - VAGINAL HAEMORRHAGE [None]
